FAERS Safety Report 20120814 (Version 1)
Quarter: 2021Q4

REPORT INFORMATION
  Report Type: Spontaneous
  Country: US (occurrence: US)
  Receive Date: 20211126
  Receipt Date: 20211126
  Transmission Date: 20220303
  Serious: Yes (Life-Threatening, Other)
  Sender: FDA-Public Use
  Company Number: US-CELLTRION INC.-2021US016035

PATIENT

DRUGS (2)
  1. RITUXIMAB [Suspect]
     Active Substance: RITUXIMAB
     Indication: Mantle cell lymphoma
     Dosage: ADMINISTERED WITH IBRUTINIB UP TO 2 YEARS
  2. IBRUTINIB [Suspect]
     Active Substance: IBRUTINIB
     Indication: Mantle cell lymphoma
     Dosage: ADMINISTERED WITH RITUXIMAB UP TO 2 YEARS WITH CONTINUATION OF IBRUTINIB ALONE.

REACTIONS (7)
  - Myelosuppression [Unknown]
  - Atrial fibrillation [Unknown]
  - Disease progression [Unknown]
  - Toxicity to various agents [Unknown]
  - Unevaluable event [Unknown]
  - Off label use [Unknown]
  - Drug effective for unapproved indication [Unknown]
